FAERS Safety Report 4649854-4 (Version None)
Quarter: 2005Q2

REPORT INFORMATION
  Report Type: 
  Country: None (occurrence: None)
  Receive Date: 20050502
  Receipt Date: 20050422
  Transmission Date: 20051028
  Serious: Yes (Hospitalization)
  Sender: FDA-Public Use
  Company Number: PHRM2005FR01400

PATIENT
  Age: 42 Year
  Sex: Male

DRUGS (1)
  1. TAREG [Suspect]
     Route: 048
     Dates: start: 20020101

REACTIONS (1)
  - HAEMATURIA [None]
